FAERS Safety Report 8796729 (Version 2)
Quarter: 2012Q4

REPORT INFORMATION
  Report Type: Report from Study
  Country: IT (occurrence: IT)
  Receive Date: 20120919
  Receipt Date: 20121224
  Transmission Date: 20130627
  Serious: Yes (Life-Threatening, Hospitalization, Other)
  Sender: FDA-Public Use
  Company Number: PHHO2012IT013460

PATIENT
  Age: 4 Year
  Sex: Female
  Weight: 16 kg

DRUGS (3)
  1. AFINITOR [Suspect]
     Indication: ASTROCYTOMA, LOW GRADE
     Dosage: 2.5 mg, UNK
     Route: 048
     Dates: start: 20120424, end: 20120510
  2. AFINITOR [Suspect]
     Dosage: 5 mg, UNK
     Route: 048
     Dates: start: 20120511, end: 20120915
  3. TOPIRAMATE [Concomitant]
     Indication: EPILEPSY
     Dosage: 70 mg/day

REACTIONS (1)
  - Atrioventricular block [Recovering/Resolving]
